FAERS Safety Report 9440759 (Version 1)
Quarter: 2013Q3

REPORT INFORMATION
  Report Type: Spontaneous
  Country: US (occurrence: US)
  Receive Date: 20130805
  Receipt Date: 20130805
  Transmission Date: 20140515
  Serious: Yes (Other)
  Sender: FDA-Public Use
  Company Number: US-BAYER-2013-091775

PATIENT
  Age: 90 Year
  Sex: Female
  Weight: 61.22 kg

DRUGS (2)
  1. ALKA-SELTZER FRUIT CHEWS [Suspect]
     Indication: DYSPEPSIA
     Dosage: 1 DOSE, PRN
     Route: 048
     Dates: start: 201307, end: 20130722
  2. MONOPRIL [Concomitant]

REACTIONS (1)
  - Blood glucose increased [Not Recovered/Not Resolved]
